FAERS Safety Report 9001598 (Version 1)
Quarter: 2013Q1

REPORT INFORMATION
  Report Type: Spontaneous
  Country: US (occurrence: US)
  Receive Date: 20130107
  Receipt Date: 20130107
  Transmission Date: 20140127
  Serious: Yes (Death)
  Sender: FDA-Public Use
  Company Number: US-PFIZER INC-2013004036

PATIENT
  Age: 75 Year
  Sex: Female

DRUGS (3)
  1. IBUPROFEN [Suspect]
  2. ACETAMINOPHEN [Suspect]
  3. DIPHENHYDRAMINE [Suspect]

REACTIONS (1)
  - Completed suicide [Fatal]
